FAERS Safety Report 8521665-9 (Version None)
Quarter: 2012Q3

REPORT INFORMATION
  Report Type: 
  Country: None (occurrence: None)
  Receive Date: 20120719
  Receipt Date: 20120717
  Transmission Date: 20120928
  Serious: Yes (Other)
  Sender: FDA-Public Use
  Company Number: PHHY2012BR060987

PATIENT
  Age: 38 Year
  Sex: Male

DRUGS (5)
  1. CYCLOSPORINE [Concomitant]
     Indication: GRAFT VERSUS HOST DISEASE
  2. METHOTREXATE [Concomitant]
     Indication: GRAFT VERSUS HOST DISEASE
  3. CYCLOPHOSPHAMIDE [Concomitant]
     Indication: GRAFT VERSUS HOST DISEASE
  4. IMATINIB MESYLATE [Suspect]
     Indication: ACUTE LYMPHOCYTIC LEUKAEMIA
  5. METHYLPREDNISOLONE [Concomitant]
     Indication: GRAFT VERSUS HOST DISEASE
     Dosage: 2 MG/KG, UNK

REACTIONS (6)
  - CAFE AU LAIT SPOTS [None]
  - NEUROFIBROMA [None]
  - PIGMENTATION DISORDER [None]
  - GINGIVITIS [None]
  - NEUROFIBROMATOSIS [None]
  - PIGMENTATION BUCCAL [None]
